FAERS Safety Report 10246892 (Version 5)
Quarter: 2015Q1

REPORT INFORMATION
  Report Type: Spontaneous
  Country: BR (occurrence: BR)
  Receive Date: 20140619
  Receipt Date: 20150320
  Transmission Date: 20150720
  Serious: Yes (Other)
  Sender: FDA-Public Use
  Company Number: BR-PFIZER INC-2014026697

PATIENT
  Age: 5 Year
  Sex: Female
  Weight: 16 kg

DRUGS (5)
  1. GENOTROPIN [Suspect]
     Active Substance: SOMATROPIN
     Dosage: 0.6 MG, SEVEN TIMES PER WEEK
     Route: 058
  2. GENOTROPIN [Suspect]
     Active Substance: SOMATROPIN
     Indication: PITUITARY HYPOPLASIA
     Dosage: UNK
  3. PURAN [Concomitant]
     Active Substance: LEVOTHYROXINE SODIUM
     Indication: HYPOTHYROIDISM
     Dosage: 25 MG (ONE UNIT), 1X/DAY
     Dates: start: 200812
  4. AEROLIN [Concomitant]
     Active Substance: ALBUTEROL
     Indication: ASTHMATIC CRISIS
     Dosage: UNK
  5. GENOTROPIN [Suspect]
     Active Substance: SOMATROPIN
     Indication: GROWTH HORMONE DEFICIENCY
     Dosage: 0.75 MG, DAILY SEVEN TIMES PER WEEK
     Route: 058
     Dates: start: 20131230

REACTIONS (7)
  - Blood growth hormone abnormal [Recovering/Resolving]
  - Influenza [Recovered/Resolved]
  - Pituitary hypoplasia [Unknown]
  - Hypermetropia [Not Recovered/Not Resolved]
  - Eye disorder [Recovered/Resolved]
  - Headache [Recovered/Resolved]
  - Pituitary enlargement [Unknown]

NARRATIVE: CASE EVENT DATE: 201401
